FAERS Safety Report 7547656-2 (Version None)
Quarter: 2011Q2

REPORT INFORMATION
  Report Type: 
  Country: None (occurrence: None)
  Receive Date: 20110614
  Receipt Date: 20110605
  Transmission Date: 20111010
  Serious: Yes (Other)
  Sender: FDA-Public Use
  Company Number: US-MERCK-1106USA01181

PATIENT
  Age: 44 Year
  Sex: Female

DRUGS (3)
  1. ROSUVASTATIN CALCIUM [Concomitant]
     Route: 065
  2. JANUVIA [Suspect]
     Indication: TYPE 2 DIABETES MELLITUS
     Route: 048
  3. PIOGLITAZONE HYDROCHLORIDE [Concomitant]
     Route: 065

REACTIONS (1)
  - HEPATITIS ACUTE [None]
